FAERS Safety Report 4519959-7 (Version None)
Quarter: 2004Q4

REPORT INFORMATION
  Report Type: 
  Country: None (occurrence: None)
  Receive Date: 20041201
  Receipt Date: 20041201
  Transmission Date: 20050328
  Serious: Yes (Hospitalization)
  Sender: FDA-Public Use
  Company Number: None

PATIENT
  Age: 48 Year
  Sex: Male
  Weight: 89.8 kg

DRUGS (15)
  1. CYCLOPHOSPHAMIDE [Suspect]
     Dosage: IV PIGGY
     Route: 042
  2. DOCUSATE [Concomitant]
  3. OMEPRAZOLE [Concomitant]
  4. BISACODYL [Concomitant]
  5. GLYBURIDE [Concomitant]
  6. FLUCONAZOLE [Concomitant]
  7. HYDROCODONE 7.5/ACETAMINOPHEN [Concomitant]
  8. METOCLOPRAMIDE [Concomitant]
  9. DORZOLAMIDE [Concomitant]
  10. IBUPROFEN [Concomitant]
  11. ARTIFICIAL TEARS POLYVINYL ALCOHOL [Concomitant]
  12. MILK OF MAGNESIA TAB [Concomitant]
  13. RISPERIDONE [Concomitant]
  14. MAGNESIUM CITRATE LIQUID [Concomitant]
  15. PHOSPHATES ENEMA [Concomitant]

REACTIONS (1)
  - TUMOUR LYSIS SYNDROME [None]
